FAERS Safety Report 5304909-6 (Version None)
Quarter: 2007Q2

REPORT INFORMATION
  Report Type: 
  Country: None (occurrence: None)
  Receive Date: 20070416
  Receipt Date: 20070405
  Transmission Date: 20071010
  Serious: Yes (Death)
  Sender: FDA-Public Use
  Company Number: 154997USA

PATIENT
  Age: 30 Year
  Sex: Female

DRUGS (1)
  1. PAROXETINE HYDROCHLORIDE [Suspect]
     Indication: ANXIETY
     Dosage: ORAL
     Route: 048

REACTIONS (11)
  - ABNORMAL BEHAVIOUR [None]
  - AKATHISIA [None]
  - COMPLETED SUICIDE [None]
  - DISCOMFORT [None]
  - DRUG DOSE OMISSION [None]
  - DRUG WITHDRAWAL SYNDROME [None]
  - FEELING ABNORMAL [None]
  - INCOHERENT [None]
  - NIGHTMARE [None]
  - SELF MUTILATION [None]
  - TREATMENT NONCOMPLIANCE [None]
